FAERS Safety Report 5704497-6 (Version None)
Quarter: 2008Q2

REPORT INFORMATION
  Report Type: 
  Country: None (occurrence: None)
  Receive Date: 20080414
  Receipt Date: 20080401
  Transmission Date: 20081010
  Serious: Yes (Hospitalization)
  Sender: FDA-Public Use
  Company Number: US-ELI_LILLY_AND_COMPANY-US200804000227

PATIENT
  Age: 96 Year
  Sex: Female

DRUGS (9)
  1. FORTEO [Suspect]
     Indication: OSTEOPOROSIS
     Dosage: UNK, UNK
     Dates: start: 20080101
  2. SOTALOL HYDROCHLORIDE [Concomitant]
     Indication: CARDIAC DISORDER
     Dosage: 160 MG, 2/D
  3. DIGITEK [Concomitant]
     Indication: CARDIAC DISORDER
     Dosage: 125 UG, DAILY (1/D)
  4. LIPITOR [Concomitant]
     Indication: BLOOD CHOLESTEROL
     Dosage: 10 MG, DAILY (1/D)
  5. AMLODIPINE BESYLATE [Concomitant]
     Indication: BLOOD PRESSURE
     Dosage: 5 MG, DAILY (1/D)
  6. LEVOXYL [Concomitant]
     Indication: THYROID DISORDER
     Dosage: 0.1 MG/KG, DAILY (1/D)
  7. COUMADIN [Concomitant]
     Indication: THROMBOSIS
     Dosage: 5 MG, DAILY (1/D)
  8. PRILOSEC [Concomitant]
     Indication: GASTROINTESTINAL DISORDER
     Dosage: 20 G, DAILY (1/D)
  9. TYLENOL                                 /SCH/ [Concomitant]
     Indication: ARTHRALGIA
     Dosage: 3 - 4 TIMES DAILY

REACTIONS (4)
  - ANIMAL SCRATCH [None]
  - CELLULITIS [None]
  - NAUSEA [None]
  - VOMITING [None]
